FAERS Safety Report 4432570-1 (Version None)
Quarter: 2004Q3

REPORT INFORMATION
  Report Type: 
  Country: None (occurrence: None)
  Receive Date: 20040820
  Receipt Date: 20040812
  Transmission Date: 20050211
  Serious: Yes (Death, Hospitalization)
  Sender: FDA-Public Use
  Company Number: 163-20785-04080292

PATIENT
  Age: 83 Year
  Sex: Female

DRUGS (1)
  1. THALOMID [Suspect]
     Indication: RENAL CELL CARCINOMA STAGE UNSPECIFIED
     Dosage: 100 MG INCREASED TO 150 MG TO AFINAL DOSE OF 200 MG, QHS, ORAL
     Route: 048
     Dates: start: 20040424, end: 20040101

REACTIONS (10)
  - ASTHMA [None]
  - CEREBROVASCULAR ACCIDENT [None]
  - CONSTIPATION [None]
  - DISEASE PROGRESSION [None]
  - FALL [None]
  - INJURY [None]
  - JOINT INJURY [None]
  - NERVE INJURY [None]
  - NUCLEAR MAGNETIC RESONANCE IMAGING ABNORMAL [None]
  - OEDEMA PERIPHERAL [None]
